FAERS Safety Report 17044998 (Version 3)
Quarter: 2020Q1

REPORT INFORMATION
  Report Type: Spontaneous
  Country: US (occurrence: US)
  Receive Date: 20191118
  Receipt Date: 20200103
  Transmission Date: 20200409
  Serious: No
  Sender: FDA-Public Use
  Company Number: US-SA-2019SA314342

PATIENT
  Age: 27 Year
  Sex: Male

DRUGS (1)
  1. DUPIXENT [Suspect]
     Active Substance: DUPILUMAB
     Indication: DERMATITIS ATOPIC
     Dosage: UNK
     Dates: start: 20191029

REACTIONS (6)
  - Ulcer [Unknown]
  - Dental caries [Unknown]
  - Tooth repair [Unknown]
  - Eye disorder [Unknown]
  - Post procedural complication [Unknown]
  - Dry skin [Unknown]

NARRATIVE: CASE EVENT DATE: 2019
